FAERS Safety Report 6854500-5 (Version None)
Quarter: 2010Q3

REPORT INFORMATION
  Report Type: 
  Country: None (occurrence: None)
  Receive Date: 20100717
  Receipt Date: 20080201
  Transmission Date: 20110219
  Serious: No
  Sender: FDA-Public Use
  Company Number: US-PFIZER INC-2008000757

PATIENT
  Sex: Female
  Weight: 96.4 kg

DRUGS (3)
  1. CHANTIX [Suspect]
     Indication: SMOKING CESSATION THERAPY
     Dates: start: 20071028
  2. ENALAPRIL MALEATE [Concomitant]
  3. BUDESONIDE [Concomitant]

REACTIONS (4)
  - CRYING [None]
  - DEPRESSED MOOD [None]
  - PARATHYROID DISORDER [None]
  - VITAMIN D DEFICIENCY [None]
